FAERS Safety Report 18629128 (Version 1)
Quarter: 2020Q4

REPORT INFORMATION
  Report Type: Spontaneous
  Country: FR (occurrence: FR)
  Receive Date: 20201217
  Receipt Date: 20201217
  Transmission Date: 20210114
  Serious: Yes (Hospitalization, Other)
  Sender: FDA-Public Use
  Company Number: FR-009507513-2012FRA006540

PATIENT
  Sex: Male

DRUGS (3)
  1. DAKLINZA [Concomitant]
     Active Substance: DACLATASVIR
     Dosage: UNK
     Dates: start: 20151020, end: 20160404
  2. SOVALDI [Concomitant]
     Active Substance: SOFOSBUVIR
     Dosage: UNK
     Dates: start: 20151020, end: 20160404
  3. RIBAVIRIN. [Suspect]
     Active Substance: RIBAVIRIN
     Indication: HEPATITIS C
     Dosage: UNK
     Dates: start: 20151020, end: 20160404

REACTIONS (1)
  - Nephroangiosclerosis [Not Recovered/Not Resolved]

NARRATIVE: CASE EVENT DATE: 2015
